FAERS Safety Report 5329192-7 (Version None)
Quarter: 2007Q2

REPORT INFORMATION
  Report Type: 
  Country: None (occurrence: None)
  Receive Date: 20070518
  Receipt Date: 20070514
  Transmission Date: 20071010
  Serious: Yes (Death, Hospitalization, Other)
  Sender: FDA-Public Use
  Company Number: BW-ABBOTT-07P-019-0364544-00

PATIENT
  Sex: Male

DRUGS (3)
  1. KALETRA [Suspect]
     Indication: PROPHYLAXIS AGAINST HIV INFECTION
     Dosage: LOPINAVIR 133.3 MILLIGRAM/RITONAVIR 33.3 MILLIGRAM
     Route: 064
     Dates: start: 20070315, end: 20070418
  2. LAMIVUDINE AND ZIDOVUDINE [Concomitant]
     Indication: PROPHYLAXIS AGAINST HIV INFECTION
     Dosage: ZIDOVUDINE 300 MILLIGRAM/LAMIVUDINE 150 MILLIGRAM
     Route: 064
     Dates: start: 20070315, end: 20070418
  3. ZIDOVUDINE [Concomitant]
     Indication: PROPHYLAXIS AGAINST HIV INFECTION
     Dates: start: 20070301

REACTIONS (3)
  - DEATH [None]
  - NEONATAL ASPIRATION [None]
  - NEONATAL RESPIRATORY DISTRESS SYNDROME [None]
